FAERS Safety Report 5671382-8 (Version None)
Quarter: 2008Q1

REPORT INFORMATION
  Report Type: 
  Country: None (occurrence: None)
  Receive Date: 20080318
  Receipt Date: 20080306
  Transmission Date: 20080703
  Serious: Yes (Other)
  Sender: FDA-Public Use
  Company Number: GR-PFIZER INC-2008021373

PATIENT
  Sex: Female

DRUGS (1)
  1. ZITHROMAX [Suspect]
     Dosage: DAILY DOSE:500MG
     Dates: start: 20080301, end: 20080303

REACTIONS (6)
  - ARTHRALGIA [None]
  - JOINT EFFUSION [None]
  - RASH [None]
  - THYROID FUNCTION TEST ABNORMAL [None]
  - TRANSAMINASES INCREASED [None]
  - WHITE BLOOD CELL COUNT INCREASED [None]
